FAERS Safety Report 6337131-5 (Version None)
Quarter: 2009Q3

REPORT INFORMATION
  Report Type: 
  Country: None (occurrence: None)
  Receive Date: 20090831
  Receipt Date: 20090827
  Transmission Date: 20100115
  Serious: Yes (Other)
  Sender: FDA-Public Use
  Company Number: SP02527

PATIENT
  Age: 58 Year
  Sex: Female

DRUGS (1)
  1. MOVIPREP [Suspect]
     Indication: BOWEL PREPARATION
     Dosage: (ONE DOSE), ORAL
     Route: 048
     Dates: start: 20090813, end: 20090813

REACTIONS (4)
  - CARDIAC DISORDER [None]
  - EAR DISCOMFORT [None]
  - HEADACHE [None]
  - HYPERSENSITIVITY [None]
